FAERS Safety Report 14955530 (Version 1)
Quarter: 2018Q2

REPORT INFORMATION
  Report Type: Spontaneous
  Country: BR (occurrence: BR)
  Receive Date: 20180531
  Receipt Date: 20180531
  Transmission Date: 20180711
  Serious: Yes (Other)
  Sender: FDA-Public Use
  Company Number: BR-SA-2018SA142069

PATIENT
  Age: 31 Year
  Sex: Female
  Weight: 59 kg

DRUGS (2)
  1. LANTUS [Suspect]
     Active Substance: INSULIN GLARGINE
     Indication: DIABETES MELLITUS
     Dosage: 20 IU IN MORNING+8 IU AT NIGHT, BID
     Route: 058
     Dates: start: 2003
  2. HUMALOG [Concomitant]
     Active Substance: INSULIN LISPRO
     Indication: DIABETES MELLITUS
     Dosage: 6 IU, TID
     Route: 058
     Dates: start: 2003

REACTIONS (3)
  - Abortion spontaneous [Unknown]
  - Product use issue [Unknown]
  - Exposure during pregnancy [Unknown]

NARRATIVE: CASE EVENT DATE: 2010
